FAERS Safety Report 7138510-9 (Version None)
Quarter: 2010Q4

REPORT INFORMATION
  Report Type: 
  Country: None (occurrence: None)
  Receive Date: 20101206
  Receipt Date: 20101202
  Transmission Date: 20110411
  Serious: Yes (Hospitalization, Other)
  Sender: FDA-Public Use
  Company Number: CA-AMGEN INC.-KDC425904

PATIENT

DRUGS (6)
  1. ETANERCEPT [Suspect]
     Indication: PSORIASIS
     Dosage: 50 MG, Q2WK
     Route: 058
     Dates: start: 20071008, end: 20080118
  2. STELARA [Suspect]
     Dosage: 45 MG, UNK
     Route: 058
     Dates: start: 20100209, end: 20100504
  3. LIPITOR [Concomitant]
     Dosage: 10 MG, QD
     Route: 048
     Dates: start: 20030101
  4. AVALIDE [Concomitant]
     Dosage: UNK UNK, QD
     Route: 048
     Dates: start: 20030101
  5. CIPRALEX [Concomitant]
     Dosage: 10 MG, QD
     Route: 048
     Dates: start: 20071031
  6. DOVOBET [Concomitant]
     Dosage: UNK UNK, PRN
     Route: 061
     Dates: start: 20080101

REACTIONS (1)
  - RENAL NEOPLASM [None]
